FAERS Safety Report 6993905-9 (Version None)
Quarter: 2010Q3

REPORT INFORMATION
  Report Type: 
  Country: None (occurrence: None)
  Receive Date: 20100917
  Receipt Date: 20091207
  Transmission Date: 20110219
  Serious: Yes (Hospitalization, Other)
  Sender: FDA-Public Use
  Company Number: US-ASTRAZENECA-2006UW15166

PATIENT
  Age: 12 Year
  Sex: Female

DRUGS (18)
  1. SEROQUEL [Suspect]
     Indication: BIPOLAR DISORDER
     Dosage: 25-1400 MG
     Route: 048
     Dates: start: 20021001, end: 20060701
  2. SEROQUEL [Suspect]
     Indication: PSYCHOTIC DISORDER
     Dosage: 25-1400 MG
     Route: 048
     Dates: start: 20021001, end: 20060701
  3. SEROQUEL [Suspect]
     Indication: AFFECTIVE DISORDER
     Dosage: 25-1400 MG
     Route: 048
     Dates: start: 20021001, end: 20060701
  4. LITHIUM CARBONATE [Concomitant]
     Route: 048
  5. ADDERALL 10 [Concomitant]
  6. RISPERIDONE [Concomitant]
  7. ARIPIPRAZOLE [Concomitant]
  8. ZIPRASIDONE HCL [Concomitant]
  9. OXCARBAZEPINE [Concomitant]
  10. LAMOTRIGINE [Concomitant]
  11. VALPROATE SODIUM [Concomitant]
  12. METHYLPHENIDATE [Concomitant]
  13. CLONIDINE [Concomitant]
  14. DEXMETHYLPHENIDATE HCL [Concomitant]
  15. OLANZAPINE [Concomitant]
  16. TRAZODONE HCL [Concomitant]
  17. BUPROPION HCL [Concomitant]
  18. LORAZEPAM [Concomitant]

REACTIONS (7)
  - AGGRESSION [None]
  - ELECTROCARDIOGRAM QT PROLONGED [None]
  - PSYCHOTIC DISORDER [None]
  - SUICIDAL IDEATION [None]
  - SUICIDE ATTEMPT [None]
  - TYPE 2 DIABETES MELLITUS [None]
  - WEIGHT INCREASED [None]
